FAERS Safety Report 6612582-X (Version None)
Quarter: 2010Q1

REPORT INFORMATION
  Report Type: 
  Country: None (occurrence: None)
  Receive Date: 20100303
  Receipt Date: 20100129
  Transmission Date: 20100710
  Serious: Yes (Death, Disabling, Other)
  Sender: FDA-Public Use
  Company Number: US-BAXTER-2009BH016626

PATIENT
  Age: 83 Year
  Sex: Male
  Weight: 89 kg

DRUGS (18)
  1. HEPARIN SODIUM INJECTION [Suspect]
     Indication: CORONARY ARTERY BYPASS
     Route: 065
     Dates: start: 20061124, end: 20061124
  2. HEPARIN SODIUM INJECTION [Suspect]
     Indication: DRUG USE FOR UNKNOWN INDICATION
     Route: 065
     Dates: start: 20061124, end: 20061124
  3. HEPARIN SODIUM INJECTION [Suspect]
     Route: 065
     Dates: start: 20061124, end: 20061124
  4. HEPARIN SODIUM INJECTION [Suspect]
     Route: 065
     Dates: start: 20061124, end: 20061124
  5. HEPARIN SODIUM INJECTION [Suspect]
     Route: 065
     Dates: start: 20061201
  6. HEPARIN SODIUM INJECTION [Suspect]
     Route: 065
     Dates: start: 20061201
  7. ATORVASTATIN CALCIUM [Concomitant]
     Indication: DRUG USE FOR UNKNOWN INDICATION
     Route: 065
  8. TOPROL-XL [Concomitant]
     Indication: DRUG USE FOR UNKNOWN INDICATION
     Route: 065
  9. ASPIRIN [Concomitant]
     Indication: DRUG USE FOR UNKNOWN INDICATION
     Route: 065
  10. SIMVASTATIN [Concomitant]
     Indication: DRUG USE FOR UNKNOWN INDICATION
     Route: 065
  11. COZAAR [Concomitant]
     Indication: DRUG USE FOR UNKNOWN INDICATION
     Route: 065
  12. NIASPAN [Concomitant]
     Indication: DRUG USE FOR UNKNOWN INDICATION
     Route: 065
  13. PERCOCET [Concomitant]
     Indication: DRUG USE FOR UNKNOWN INDICATION
     Route: 065
  14. COLACE [Concomitant]
     Indication: DRUG USE FOR UNKNOWN INDICATION
     Route: 065
  15. LASIX [Concomitant]
     Indication: DRUG USE FOR UNKNOWN INDICATION
     Route: 065
  16. K-DUR [Concomitant]
     Indication: DRUG USE FOR UNKNOWN INDICATION
     Route: 065
  17. ECOTRIN [Concomitant]
     Indication: DRUG USE FOR UNKNOWN INDICATION
     Route: 065
  18. FLOMAX [Concomitant]
     Indication: DRUG USE FOR UNKNOWN INDICATION
     Route: 065

REACTIONS (7)
  - CARDIO-RESPIRATORY ARREST [None]
  - CEREBROVASCULAR ACCIDENT [None]
  - COAGULOPATHY [None]
  - DYSPNOEA [None]
  - HYPERSENSITIVITY [None]
  - OEDEMA PERIPHERAL [None]
  - THROMBOCYTOPENIA [None]
